FAERS Safety Report 7878856-X (Version None)
Quarter: 2011Q4

REPORT INFORMATION
  Report Type: 
  Country: None (occurrence: None)
  Receive Date: 20111024
  Receipt Date: 20110922
  Transmission Date: 20120403
  Serious: Yes (Death)
  Sender: FDA-Public Use
  Company Number: AMAG201100198

PATIENT
  Age: 69 Year
  Sex: Female
  Weight: 72 kg

DRUGS (12)
  1. CALCITRIOL [Concomitant]
  2. HYDRALAZINE HCL [Concomitant]
  3. METOPROLOL TARTRATE [Concomitant]
  4. SODIUM BICARBONATE IN PLASTIC CONTAINER [Concomitant]
  5. FERAHEME [Suspect]
     Indication: IRON DEFICIENCY ANAEMIA
     Dosage: 5.5 ML, SINGLE, INTRAVENOUS
     Route: 042
     Dates: start: 20110902, end: 20110902
  6. LASIX [Concomitant]
  7. OXYGEN (OXYGEN) [Concomitant]
  8. ASPIRIN [Concomitant]
  9. ISOSORBIDE (ISOSORBIDE) [Concomitant]
  10. VITAMIN D3 (COLECALCIFEROL) TABLET [Concomitant]
  11. CLONIDINE [Concomitant]
  12. AMLODIPINE (AMLODIPINE MALEATE) [Concomitant]

REACTIONS (5)
  - UNRESPONSIVE TO STIMULI [None]
  - DYSPNOEA [None]
  - RESPIRATORY ARREST [None]
  - ANAPHYLACTIC REACTION [None]
  - PULSE ABSENT [None]
